FAERS Safety Report 6128651-7 (Version None)
Quarter: 2009Q1

REPORT INFORMATION
  Report Type: 
  Country: None (occurrence: None)
  Receive Date: 20090323
  Receipt Date: 20090311
  Transmission Date: 20090719
  Serious: Yes (Other)
  Sender: FDA-Public Use
  Company Number: PT-PFIZER INC-2009183083

PATIENT

DRUGS (10)
  1. CHAMPIX [Suspect]
     Indication: SMOKING CESSATION THERAPY
     Dosage: 1 MG, 2X/DAY
  2. ATROVENT [Concomitant]
     Dosage: UNK
     Dates: start: 20030101
  3. VENTILAN [Concomitant]
     Dosage: UNK
     Dates: start: 20030101
  4. FLUIMUCIL [Concomitant]
     Dosage: UNK
     Dates: start: 20030101
  5. SPIRIVA [Concomitant]
     Dosage: UNK
     Dates: start: 20030101
  6. ALL OTHER THERAPEUTIC PRODUCTS [Concomitant]
     Dosage: UNK
     Dates: start: 20030101
  7. RANITIDINE [Concomitant]
     Dosage: UNK MG, UNK
     Dates: start: 20030101
  8. LYRICA [Concomitant]
     Dosage: 100 UNK, UNK
  9. VICTAN [Concomitant]
     Dosage: UNK
  10. FLUDEX [Concomitant]
     Dosage: UNK

REACTIONS (7)
  - ABDOMINAL PAIN UPPER [None]
  - ASTHENIA [None]
  - DYSPEPSIA [None]
  - GASTRIC HAEMORRHAGE [None]
  - HAEMATEMESIS [None]
  - INSOMNIA [None]
  - NAUSEA [None]
